FAERS Safety Report 14225665 (Version 2)
Quarter: 2017Q4

REPORT INFORMATION
  Report Type: Spontaneous
  Country: FR (occurrence: FR)
  Receive Date: 20171127
  Receipt Date: 20171130
  Transmission Date: 20180321
  Serious: Yes (Life-Threatening, Other)
  Sender: FDA-Public Use
  Company Number: FR-MYLANLABS-2017M1074506

PATIENT
  Sex: Female

DRUGS (1)
  1. NORADRENALINE MYLAN 2 MG/ML SULPHITE FREE SOLUTION FOR INFUSION [Suspect]
     Active Substance: NOREPINEPHRINE
     Indication: PRODUCT USED FOR UNKNOWN INDICATION
     Dosage: 2ML FOR 4MG
     Dates: start: 20171013

REACTIONS (3)
  - Cardiac arrest [Recovered/Resolved with Sequelae]
  - Arrhythmia [Recovered/Resolved with Sequelae]
  - Wrong drug administered [Unknown]

NARRATIVE: CASE EVENT DATE: 20171013
